FAERS Safety Report 6203854-1 (Version None)
Quarter: 2009Q2

REPORT INFORMATION
  Report Type: 
  Country: None (occurrence: None)
  Receive Date: 20090527
  Receipt Date: 20090514
  Transmission Date: 20091009
  Serious: Yes (Other)
  Sender: FDA-Public Use
  Company Number: GR-PFIZER INC-2009215087

PATIENT

DRUGS (3)
  1. LINEZOLID [Suspect]
     Indication: PNEUMONIA
     Dates: start: 20080101
  2. MEROPENEM [Suspect]
     Indication: PNEUMONIA
     Dates: start: 20080101
  3. QUINOLONE ANTIBACTERIALS [Suspect]
     Indication: PNEUMONIA
     Dates: start: 20080101

REACTIONS (1)
  - ABORTION SPONTANEOUS [None]
